FAERS Safety Report 5786752-7 (Version None)
Quarter: 2008Q2

REPORT INFORMATION
  Report Type: 
  Country: None (occurrence: None)
  Receive Date: 20080618
  Receipt Date: 20080610
  Transmission Date: 20081010
  Serious: Yes (Hospitalization)
  Sender: FDA-Public Use
  Company Number: 8033585

PATIENT
  Sex: Male

DRUGS (2)
  1. KEPPRA [Suspect]
  2. BENZODIAZEPIN [Concomitant]

REACTIONS (4)
  - HEPATIC ENZYME INCREASED [None]
  - PLATELET COUNT DECREASED [None]
  - PROTHROMBIN TIME ABNORMAL [None]
  - RED BLOOD CELL COUNT DECREASED [None]
